FAERS Safety Report 7796711-0 (Version None)
Quarter: 2011Q3

REPORT INFORMATION
  Report Type: 
  Country: None (occurrence: None)
  Receive Date: 20110930
  Receipt Date: 20110907
  Transmission Date: 20111222
  Serious: Yes (Hospitalization)
  Sender: FDA-Public Use
  Company Number: M1103750

PATIENT
  Age: 92 Year
  Sex: Male

DRUGS (1)
  1. PREVALITE [Suspect]
     Indication: DIARRHOEA
     Dosage: 1 TEASPOONFUL, QD, ORAL
     Route: 048
     Dates: start: 20080101, end: 20110803

REACTIONS (10)
  - PANCREATITIS [None]
  - DIARRHOEA [None]
  - ABDOMINAL PAIN UPPER [None]
  - NAUSEA [None]
  - VOMITING [None]
  - DEHYDRATION [None]
  - FOOD POISONING [None]
  - WHITE BLOOD CELL COUNT INCREASED [None]
  - WHITE BLOOD CELL COUNT DECREASED [None]
  - ABDOMINAL DISCOMFORT [None]
